FAERS Safety Report 24296078 (Version 2)
Quarter: 2024Q3

REPORT INFORMATION
  Report Type: Spontaneous
  Country: JP (occurrence: JP)
  Receive Date: 20240909
  Receipt Date: 20240927
  Transmission Date: 20241017
  Serious: Yes (Hospitalization, Other)
  Sender: NOVO NORDISK
  Company Number: JP-NOVOPROD-1276927

PATIENT
  Age: 14 Year
  Weight: 58.7 kg

DRUGS (2)
  1. TRESIBA [Suspect]
     Active Substance: INSULIN DEGLUDEC
     Indication: Type 1 diabetes mellitus
     Dosage: 20.00 UT/DAY
     Route: 058
  2. NOVORAPID [Suspect]
     Active Substance: INSULIN ASPART
     Indication: Type 1 diabetes mellitus
     Dosage: 31.00 UT/DAY
     Route: 058

REACTIONS (3)
  - Diabetic hepatopathy [Recovered/Resolved]
  - Condition aggravated [Recovered/Resolved]
  - Diabetic ketoacidosis [Recovered/Resolved]
